FAERS Safety Report 10495177 (Version 1)
Quarter: 2014Q4

REPORT INFORMATION
  Report Type: Spontaneous
  Country: BR (occurrence: BR)
  Receive Date: 20141003
  Receipt Date: 20141003
  Transmission Date: 20150528
  Serious: Yes (Other)
  Sender: FDA-Public Use
  Company Number: PHHY2014BR127176

PATIENT
  Age: 49 Year
  Sex: Female

DRUGS (3)
  1. SIMVASTATIN. [Concomitant]
     Active Substance: SIMVASTATIN
     Dosage: 40 MG, UNK
  2. SANDOSTATIN LAR DEPOT [Suspect]
     Active Substance: OCTREOTIDE ACETATE
     Dosage: 20 MG, EACH 28 DAYS
  3. SANDOSTATIN LAR DEPOT [Suspect]
     Active Substance: OCTREOTIDE ACETATE
     Dosage: 20 MG, EACH 28 DAYS

REACTIONS (7)
  - Hyponatraemia [Unknown]
  - Post procedural complication [Unknown]
  - Pituitary tumour benign [Unknown]
  - Insulin-like growth factor increased [Unknown]
  - Haemoptysis [Unknown]
  - Blood glucose decreased [Unknown]
  - Blood growth hormone increased [Unknown]
